FAERS Safety Report 17109363 (Version 3)
Quarter: 2020Q1

REPORT INFORMATION
  Report Type: Spontaneous
  Country: BR (occurrence: BR)
  Receive Date: 20191204
  Receipt Date: 20200114
  Transmission Date: 20200409
  Serious: Yes (Hospitalization)
  Sender: FDA-Public Use
  Company Number: BR-EMD SERONO-9132291

PATIENT
  Sex: Female

DRUGS (6)
  1. GLIFAGE [Suspect]
     Active Substance: METFORMIN HYDROCHLORIDE
     Dosage: CHANGED SHAPE AND FORMULA (NEW FORMAT)
     Route: 048
     Dates: start: 201910, end: 2019
  2. DIAMICRON [Concomitant]
     Active Substance: GLICLAZIDE
     Indication: DIABETES MELLITUS
  3. GLIFAGE [Suspect]
     Active Substance: METFORMIN HYDROCHLORIDE
     Indication: TYPE 2 DIABETES MELLITUS
     Dosage: OLD FORMAT, 2 TABLETS IN THE MORNING, 1 TABLET AFTER MEALS (NOT SPECIFIED) AND 1 TABLET BEFORE GOING
     Route: 048
  4. GLIFAGE [Suspect]
     Active Substance: METFORMIN HYDROCHLORIDE
     Dosage: RESUMED USE OF OLD FAORMAT AGAIN
     Route: 048
  5. GLIFAGE [Suspect]
     Active Substance: METFORMIN HYDROCHLORIDE
     Dosage: RETURNED TO OLD FORMAT
     Route: 048
     Dates: start: 2019, end: 2019
  6. GLIFAGE [Suspect]
     Active Substance: METFORMIN HYDROCHLORIDE
     Dosage: TOOK THE NEW FORMAT AGAIN IN THE MORNING
     Route: 048
     Dates: start: 201912

REACTIONS (8)
  - Blood glucose increased [Unknown]
  - Malaise [Not Recovered/Not Resolved]
  - Fatigue [Not Recovered/Not Resolved]
  - Vision blurred [Not Recovered/Not Resolved]
  - Cardiometabolic syndrome [Unknown]
  - Dehydration [Not Recovered/Not Resolved]
  - Dry skin [Not Recovered/Not Resolved]
  - Skin fissures [Not Recovered/Not Resolved]

NARRATIVE: CASE EVENT DATE: 2019
